FAERS Safety Report 20446766 (Version 1)
Quarter: 2022Q1

REPORT INFORMATION
  Report Type: Spontaneous
  Country: US (occurrence: US)
  Receive Date: 20220208
  Receipt Date: 20220208
  Transmission Date: 20220423
  Serious: Yes (Hospitalization, Other)
  Sender: FDA-Public Use
  Company Number: US-BIOVITRUM-2022US00773

PATIENT
  Sex: Female

DRUGS (13)
  1. SYNAGIS [Suspect]
     Active Substance: PALIVIZUMAB
     Indication: Antiviral prophylaxis
     Route: 030
  2. SYNAGIS [Suspect]
     Active Substance: PALIVIZUMAB
     Indication: Atrioventricular septal defect
  3. SYNAGIS [Suspect]
     Active Substance: PALIVIZUMAB
     Indication: Chronic left ventricular failure
  4. CLONAZEPAM [Concomitant]
     Active Substance: CLONAZEPAM
  5. FAMOTIDINE [Concomitant]
     Active Substance: FAMOTIDINE
  6. BUDESONIDE [Concomitant]
     Active Substance: BUDESONIDE
  7. EPANED [Concomitant]
     Active Substance: ENALAPRIL MALEATE
  8. ALBUTEROL SULFATE [Concomitant]
     Active Substance: ALBUTEROL SULFATE
  9. SODIUM CHLORIDE [Concomitant]
     Active Substance: SODIUM CHLORIDE
  10. TOBRAMYCIN [Concomitant]
     Active Substance: TOBRAMYCIN
  11. CAROSPIR [Concomitant]
     Active Substance: SPIRONOLACTONE
  12. CHLOROTHIAZIDE [Concomitant]
     Active Substance: CHLOROTHIAZIDE
  13. DIGOXIN [Concomitant]
     Active Substance: DIGOXIN

REACTIONS (2)
  - Sepsis [Unknown]
  - Product dose omission issue [Unknown]
